FAERS Safety Report 7400045-3 (Version None)
Quarter: 2011Q2

REPORT INFORMATION
  Report Type: 
  Country: None (occurrence: None)
  Receive Date: 20110407
  Receipt Date: 20110405
  Transmission Date: 20111010
  Serious: Yes (Other)
  Sender: FDA-Public Use
  Company Number: US-ABBOTT-11P-163-0715820-00

PATIENT
  Sex: Male
  Weight: 103.51 kg

DRUGS (5)
  1. DIOVAN HCT [Concomitant]
     Indication: PRODUCT USED FOR UNKNOWN INDICATION
  2. NIASPAN [Suspect]
     Indication: PRODUCT USED FOR UNKNOWN INDICATION
     Dates: start: 20070101, end: 20100601
  3. ASPIRIN [Concomitant]
     Indication: PRODUCT USED FOR UNKNOWN INDICATION
     Dosage: 30 MIN PRIOR TO NIASPAN
  4. NIASPAN [Suspect]
     Dosage: AT BEDTIME
     Dates: start: 20100701
  5. VYTORIN [Concomitant]
     Indication: PRODUCT USED FOR UNKNOWN INDICATION

REACTIONS (4)
  - PROSTATIC DISORDER [None]
  - ABNORMAL DREAMS [None]
  - SLEEP DISORDER [None]
  - INSOMNIA [None]
